FAERS Safety Report 9722242 (Version 1)
Quarter: 2013Q4

REPORT INFORMATION
  Report Type: Spontaneous
  Country: FR (occurrence: FR)
  Receive Date: 20131202
  Receipt Date: 20131202
  Transmission Date: 20140711
  Serious: Yes (Other)
  Sender: FDA-Public Use
  Company Number: FR-JNJFOC-20131112268

PATIENT
  Age: 61 Year
  Sex: Female

DRUGS (19)
  1. DUROGESIC [Suspect]
     Indication: PRODUCT USED FOR UNKNOWN INDICATION
     Route: 062
  2. DUROGESIC [Suspect]
     Indication: PRODUCT USED FOR UNKNOWN INDICATION
     Route: 062
     Dates: start: 20131113, end: 20131113
  3. ZOPHREN [Concomitant]
     Route: 065
  4. TAVANIC [Concomitant]
     Indication: PNEUMONIA KLEBSIELLA
     Route: 042
     Dates: start: 20131104
  5. AUGMENTIN [Concomitant]
     Indication: PNEUMONIA KLEBSIELLA
     Route: 042
     Dates: start: 20131104, end: 20131113
  6. SPECIAFOLDINE [Concomitant]
     Route: 065
  7. LYRICA [Concomitant]
     Route: 065
  8. CORTANCYL [Concomitant]
     Route: 065
  9. ACTISKENAN [Concomitant]
     Route: 042
  10. PARACETAMOL [Concomitant]
     Route: 065
  11. PAROXETINE [Concomitant]
     Route: 065
  12. FORLAX [Concomitant]
     Dosage: DOSE:1 TO 2 SACK/DAY
     Route: 065
  13. BROMAZEPAM [Concomitant]
     Route: 065
  14. IRESSA [Concomitant]
     Route: 065
  15. PANTOPRAZOLE [Concomitant]
     Route: 065
  16. DIFFU-K [Concomitant]
     Dosage: DOSE:2/DAY
     Route: 065
  17. CACIT D3 [Concomitant]
     Route: 065
  18. XGEVA [Concomitant]
     Dosage: DOSE: 1/MONTH
     Route: 065
  19. PRIMPERAN [Concomitant]
     Dosage: DOSE: 3/DAY
     Route: 065

REACTIONS (5)
  - Anaphylactic reaction [Unknown]
  - Hypotension [Recovered/Resolved]
  - Erythema [Recovered/Resolved]
  - Gaze palsy [Recovered/Resolved]
  - Malaise [Recovered/Resolved]
